FAERS Safety Report 24977886 (Version 5)
Quarter: 2025Q1

REPORT INFORMATION
  Report Type: Spontaneous
  Country: US (occurrence: US)
  Receive Date: 20250217
  Receipt Date: 20250324
  Transmission Date: 20250408
  Serious: No
  Sender: PFIZER
  Company Number: US-PFIZER INC-202200021295

PATIENT
  Age: 71 Year
  Sex: Female
  Weight: 122.45 kg

DRUGS (2)
  1. PREMPRO [Suspect]
     Active Substance: ESTROGENS, CONJUGATED\MEDROXYPROGESTERONE ACETATE
     Dosage: 1 DF, 1X/DAY
  2. PREMPRO [Suspect]
     Active Substance: ESTROGENS, CONJUGATED\MEDROXYPROGESTERONE ACETATE
     Dosage: STRENGTH: 0.45/2.5 1 QD (ONCE A DAY)

REACTIONS (3)
  - Hot flush [Not Recovered/Not Resolved]
  - Headache [Not Recovered/Not Resolved]
  - Product prescribing error [Unknown]
